FAERS Safety Report 15699156 (Version 1)
Quarter: 2018Q4

REPORT INFORMATION
  Report Type: Spontaneous
  Country: US (occurrence: US)
  Receive Date: 20181207
  Receipt Date: 20181207
  Transmission Date: 20190205
  Serious: No
  Sender: FDA-Public Use
  Company Number: US-PFIZER INC-2018504971

PATIENT
  Age: 55 Year
  Sex: Female

DRUGS (1)
  1. GENOTROPIN MQ [Suspect]
     Active Substance: SOMATROPIN
     Indication: PRADER-WILLI SYNDROME
     Dosage: 0.6 MG, DAILY

REACTIONS (9)
  - Blood urea decreased [Unknown]
  - Blood chloride decreased [Unknown]
  - Insulin-like growth factor increased [Unknown]
  - High density lipoprotein increased [Unknown]
  - Product use in unapproved indication [Unknown]
  - Carbon dioxide increased [Unknown]
  - Blood sodium decreased [Unknown]
  - Tri-iodothyronine decreased [Unknown]
  - Blood creatinine decreased [Unknown]

NARRATIVE: CASE EVENT DATE: 20180918
